FAERS Safety Report 6600519-9 (Version None)
Quarter: 2010Q1

REPORT INFORMATION
  Report Type: 
  Country: None (occurrence: None)
  Receive Date: 20100224
  Receipt Date: 20100215
  Transmission Date: 20100710
  Serious: Yes (Hospitalization)
  Sender: FDA-Public Use
  Company Number: RO-MERCK-1002USA03400

PATIENT
  Age: 56 Year
  Sex: Female

DRUGS (4)
  1. HYDRODIURIL [Suspect]
     Route: 048
  2. ALFACALCIDOL [Suspect]
     Indication: OSTEOPOROSIS PROPHYLAXIS
     Route: 065
  3. CALCIUM (UNSPECIFIED) [Suspect]
     Indication: OSTEOPOROSIS PROPHYLAXIS
     Route: 065
  4. DIGOXIN [Suspect]
     Dosage: EXCEPT ON THURSDAYS AND SUNDAYS
     Route: 065

REACTIONS (2)
  - HYPERCALCAEMIA [None]
  - PANCREATITIS [None]
